FAERS Safety Report 9327684 (Version 1)
Quarter: 2013Q2

REPORT INFORMATION
  Report Type: Spontaneous
  Country: US (occurrence: US)
  Receive Date: 20130604
  Receipt Date: 20130604
  Transmission Date: 20140414
  Serious: No
  Sender: FDA-Public Use
  Company Number: US-PFIZER INC-2013167137

PATIENT
  Age: 87 Year
  Sex: Female
  Weight: 87.1 kg

DRUGS (4)
  1. NORVASC [Suspect]
     Indication: HYPERTENSION
     Dosage: UNK
  2. GLUCOTROL [Suspect]
     Indication: DIABETES MELLITUS
     Dosage: UNK
  3. HYDRALAZINE [Concomitant]
     Indication: HYPERTENSION
     Dosage: 800 MG, 3X/DAY
  4. WARFARIN [Concomitant]
     Dosage: UNK

REACTIONS (2)
  - Arthropathy [Unknown]
  - Gait disturbance [Unknown]
